FAERS Safety Report 8979205 (Version 1)
Quarter: 2012Q4

REPORT INFORMATION
  Report Type: 
  Country: US (occurrence: US)
  Receive Date: 20121221
  Receipt Date: 20121221
  Transmission Date: 20130627
  Serious: Yes (Other)
  Sender: FDA-Public Use
  Company Number: US-AMGEN-USASP2012081896

PATIENT
  Age: 31 Year
  Sex: Female

DRUGS (5)
  1. ENBREL [Suspect]
     Indication: RHEUMATOID ARTHRITIS
     Dosage: UNK
  2. HUMIRA [Concomitant]
     Indication: RHEUMATOID ARTHRITIS
     Dosage: 40 mg, 2 times/wk
     Dates: start: 2007, end: 2008
  3. METHOTREXATE [Concomitant]
     Dosage: UNK
     Dates: end: 201210
  4. PREDNISONE [Concomitant]
     Indication: RHEUMATOID ARTHRITIS
     Dosage: UNK
  5. RELAFEN [Concomitant]
     Indication: RHEUMATOID ARTHRITIS
     Dosage: UNK
     Dates: end: 201202

REACTIONS (4)
  - Prolonged labour [Recovered/Resolved]
  - Premature rupture of membranes [Recovered/Resolved]
  - Premature labour [Recovered/Resolved]
  - Drug ineffective [Recovered/Resolved]
